FAERS Safety Report 7505288-6 (Version None)
Quarter: 2011Q2

REPORT INFORMATION
  Report Type: 
  Country: None (occurrence: None)
  Receive Date: 20110526
  Receipt Date: 20110511
  Transmission Date: 20111010
  Serious: Yes (Hospitalization)
  Sender: FDA-Public Use
  Company Number: FR-JNJFOC-20110508730

PATIENT
  Sex: Female

DRUGS (9)
  1. LERCANIDIPINE [Concomitant]
     Route: 065
     Dates: end: 20110214
  2. ACETAMINOPHEN [Concomitant]
     Route: 065
     Dates: end: 20110214
  3. TRAMADOL HCL [Concomitant]
     Dates: start: 20110214, end: 20110217
  4. DILTIAZEM [Concomitant]
     Route: 065
     Dates: start: 20110201
  5. ACETAMINOPHEN [Suspect]
     Indication: PRODUCT USED FOR UNKNOWN INDICATION
     Route: 048
     Dates: start: 20110228, end: 20110303
  6. ESIDRIX [Concomitant]
     Route: 065
     Dates: start: 20110214
  7. ACETAMINOPHEN AND TRAMADOL HCL [Suspect]
     Indication: PRODUCT USED FOR UNKNOWN INDICATION
     Dosage: 37.5/325 MG
     Route: 048
     Dates: start: 20110224, end: 20110303
  8. RAMIPRIL [Concomitant]
     Route: 065
     Dates: start: 20110201
  9. COTRIATEC [Concomitant]
     Route: 065
     Dates: start: 20110201

REACTIONS (1)
  - HEPATITIS CHOLESTATIC [None]
